FAERS Safety Report 9084500 (Version 3)
Quarter: 2019Q2

REPORT INFORMATION
  Report Type: Spontaneous
  Country: CA (occurrence: CA)
  Receive Date: 20130131
  Receipt Date: 20190503
  Transmission Date: 20190711
  Serious: Yes (Other)
  Sender: FDA-Public Use
  Company Number: CA-PFIZER INC-2013030493

PATIENT
  Age: 78 Year
  Sex: Male

DRUGS (3)
  1. FLOMAX [Suspect]
     Active Substance: TAMSULOSIN HYDROCHLORIDE
     Dosage: UNK
  2. TOVIAZ [Suspect]
     Active Substance: FESOTERODINE FUMARATE
     Dosage: 4 MG, UNK
  3. LASIX [Concomitant]
     Active Substance: FUROSEMIDE
     Dosage: UNK

REACTIONS (7)
  - Blood pressure increased [Unknown]
  - Penis disorder [Unknown]
  - Ocular hyperaemia [Unknown]
  - Dysuria [Unknown]
  - Hypotension [Recovered/Resolved]
  - Chest discomfort [Recovered/Resolved]
  - Eye discharge [Unknown]

NARRATIVE: CASE EVENT DATE: 20101112
